FAERS Safety Report 5534509-4 (Version None)
Quarter: 2007Q4

REPORT INFORMATION
  Report Type: 
  Country: None (occurrence: None)
  Receive Date: 20071204
  Receipt Date: 20071204
  Transmission Date: 20080405
  Serious: Yes (Other)
  Sender: FDA-Public Use
  Company Number: None

PATIENT
  Age: 58 Year
  Sex: Female
  Weight: 81.6475 kg

DRUGS (2)
  1. LEVAQUIN [Suspect]
     Indication: PNEUMONIA
     Dosage: 5 DAYS   1 PER DAY
     Dates: start: 20071117, end: 20071121
  2. LEVAQUIN [Suspect]
     Indication: PNEUMONIA
     Dosage: 5 DAYS  1 PER DAY
     Dates: start: 20071122, end: 20071126

REACTIONS (4)
  - ARTHRALGIA [None]
  - BACK PAIN [None]
  - MUSCULOSKELETAL CHEST PAIN [None]
  - OEDEMA PERIPHERAL [None]
